FAERS Safety Report 25130570 (Version 1)
Quarter: 2025Q1

REPORT INFORMATION
  Report Type: Spontaneous
  Country: JP (occurrence: JP)
  Receive Date: 20250327
  Receipt Date: 20250327
  Transmission Date: 20250408
  Serious: Yes (Hospitalization, Other)
  Sender: CHEPLAPHARM
  Company Number: JP-CHEPLA-2025003790

PATIENT
  Age: 80 Year
  Sex: Male

DRUGS (3)
  1. HYDROXYUREA [Suspect]
     Active Substance: HYDROXYUREA
     Indication: Product used for unknown indication
     Dates: end: 202502
  2. JAKAFI [Suspect]
     Active Substance: RUXOLITINIB
     Indication: Myeloproliferative neoplasm
     Route: 048
     Dates: start: 20230409
  3. JAKAFI [Suspect]
     Active Substance: RUXOLITINIB
     Indication: Myeloproliferative neoplasm
     Dosage: THEY CUT HIS DOSE TO ONCE A DAY
     Route: 048
     Dates: end: 20230601

REACTIONS (2)
  - Haemoglobin decreased [Unknown]
  - Blood potassium increased [Unknown]

NARRATIVE: CASE EVENT DATE: 20250101
